FAERS Safety Report 8218020-8 (Version None)
Quarter: 2012Q1

REPORT INFORMATION
  Report Type: 
  Country: None (occurrence: None)
  Receive Date: 20120319
  Receipt Date: 20120315
  Transmission Date: 20120608
  Serious: Yes (Other)
  Sender: FDA-Public Use
  Company Number: US-PFIZER INC-2012068959

PATIENT
  Sex: Male

DRUGS (1)
  1. VIAGRA [Suspect]
     Indication: ERECTILE DYSFUNCTION
     Dosage: 100 MG TABLETS SPLIT IN HALF ONCE WEEKLY
     Route: 048
     Dates: start: 19960101

REACTIONS (2)
  - CARDIAC FAILURE CONGESTIVE [None]
  - DIZZINESS [None]
